FAERS Safety Report 25925706 (Version 1)
Quarter: 2025Q4

REPORT INFORMATION
  Report Type: Spontaneous
  Country: US (occurrence: None)
  Receive Date: 20251014
  Receipt Date: 20251014
  Transmission Date: 20260119
  Serious: No
  Sender: FDA-CTU
  Company Number: None

PATIENT
  Age: 72 Year
  Sex: Female

DRUGS (4)
  1. NUCALA [Suspect]
     Active Substance: MEPOLIZUMAB
     Indication: Asthma
     Dosage: 100MG/ML EVERY 4 WEEKS UNDER THE SKIN (SUBCUTANEOUS)
     Dates: start: 20250605
  2. ATORVASTATIN [Concomitant]
     Active Substance: ATORVASTATIN
  3. MELOXICAM [Concomitant]
     Active Substance: MELOXICAM
  4. Contour next lancets and least strips and meter [Concomitant]

REACTIONS (2)
  - Injection site rash [None]
  - Rash [None]

NARRATIVE: CASE EVENT DATE: 20250813
